FAERS Safety Report 14234838 (Version 1)
Quarter: 2017Q4

REPORT INFORMATION
  Report Type: Spontaneous
  Country: JP (occurrence: JP)
  Receive Date: 20171129
  Receipt Date: 20171129
  Transmission Date: 20180321
  Serious: Yes (Other)
  Sender: FDA-Public Use
  Company Number: JP-SA-2017SA238441

PATIENT
  Age: 27 Year
  Sex: Female

DRUGS (3)
  1. LEVOCETIRIZINE [Suspect]
     Active Substance: LEVOCETIRIZINE
     Indication: URTICARIA
     Route: 048
     Dates: end: 201708
  2. LEVOCETIRIZINE [Suspect]
     Active Substance: LEVOCETIRIZINE
     Indication: URTICARIA
     Dosage: AT REDUCED DOSE
     Route: 048
     Dates: end: 201705
  3. LEVOCETIRIZINE [Suspect]
     Active Substance: LEVOCETIRIZINE
     Indication: URTICARIA
     Route: 048

REACTIONS (2)
  - Premature labour [Unknown]
  - Pregnancy [Unknown]

NARRATIVE: CASE EVENT DATE: 2017
